FAERS Safety Report 12571112 (Version 2)
Quarter: 2025Q3

REPORT INFORMATION
  Report Type: Spontaneous
  Country: BR (occurrence: BR)
  Receive Date: 20160719
  Receipt Date: 20250823
  Transmission Date: 20251020
  Serious: Yes (Death, Other)
  Sender: SANOFI AVENTIS
  Company Number: BR-SA-2016SA130166

PATIENT
  Age: 14 Year
  Sex: Female

DRUGS (4)
  1. PREDNISONE [Suspect]
     Active Substance: PREDNISONE
     Indication: Systemic lupus erythematosus
     Dosage: 60 MG,QD
  2. PREDNISONE [Suspect]
     Active Substance: PREDNISONE
     Dosage: 30 MG,QD
  3. METHYLPREDNISOLONE HEMISUCCINATE [Suspect]
     Active Substance: METHYLPREDNISOLONE HEMISUCCINATE
     Indication: Systemic lupus erythematosus
     Dosage: 1.0 G, QD
     Route: 042
  4. CHLOROQUINE PHOSPHATE [Suspect]
     Active Substance: CHLOROQUINE PHOSPHATE
     Indication: Systemic lupus erythematosus
     Dosage: 250 MG,QD

REACTIONS (10)
  - Disseminated tuberculosis [Fatal]
  - Cough [Fatal]
  - Pyrexia [Fatal]
  - Abdominal pain [Fatal]
  - Productive cough [Fatal]
  - Dyspnoea [Fatal]
  - Lymphadenopathy [Fatal]
  - Somnolence [Fatal]
  - Stupor [Fatal]
  - Respiratory failure [Fatal]
